FAERS Safety Report 25543818 (Version 1)
Quarter: 2025Q3

REPORT INFORMATION
  Report Type: Other
  Country: EU (occurrence: EU)
  Receive Date: 20250711
  Receipt Date: 20250711
  Transmission Date: 20251020
  Serious: Yes (Death, Hospitalization)
  Sender: ANI
  Company Number: EU-ANIPHARMA-023423

PATIENT
  Sex: Male

DRUGS (18)
  1. OPIUM [Suspect]
     Active Substance: OPIUM
     Indication: Abdominal pain
  2. PREDNISOLONE [Concomitant]
     Active Substance: PREDNISOLONE
     Indication: Iridocyclitis
  3. RITUXIMAB [Concomitant]
     Active Substance: RITUXIMAB
     Indication: Chronic lymphocytic leukaemia
  4. BENDAMUSTINE [Concomitant]
     Active Substance: BENDAMUSTINE
     Indication: Chronic lymphocytic leukaemia
  5. PREDNISOLONE [Concomitant]
     Active Substance: PREDNISOLONE
     Indication: Chronic lymphocytic leukaemia
  6. GANCICLOVIR [Concomitant]
     Active Substance: GANCICLOVIR
     Indication: Cytomegalovirus enterocolitis
  7. LOPERAMIDE [Concomitant]
     Active Substance: LOPERAMIDE
     Indication: Diarrhoea
  8. CHOLESTYRAMINE [Concomitant]
     Active Substance: CHOLESTYRAMINE
     Indication: Diarrhoea
  9. PIPERACILLIN SODIUM\TAZOBACTAM SODIUM [Concomitant]
     Active Substance: PIPERACILLIN SODIUM\TAZOBACTAM SODIUM
     Indication: Pyrexia
  10. ALBUMIN HUMAN [Concomitant]
     Active Substance: ALBUMIN HUMAN
     Indication: Hypoalbuminaemia
  11. immune-globulin [Concomitant]
     Indication: Hypogammaglobulinaemia
  12. VANCOMYCIN [Concomitant]
     Active Substance: VANCOMYCIN
     Indication: Enterococcal infection
  13. LINEZOLID [Concomitant]
     Active Substance: LINEZOLID
     Indication: Pseudomonas infection
  14. MEROPENEM [Concomitant]
     Active Substance: MEROPENEM
     Indication: Pseudomonas infection
  15. immune-globulin [Concomitant]
     Indication: Infection
  16. ALBUMIN HUMAN [Concomitant]
     Active Substance: ALBUMIN HUMAN
     Indication: Oedema
  17. PIPERACILLIN SODIUM\TAZOBACTAM SODIUM [Concomitant]
     Active Substance: PIPERACILLIN SODIUM\TAZOBACTAM SODIUM
     Indication: Escherichia infection
  18. PREDNISOLONE [Concomitant]
     Active Substance: PREDNISOLONE
     Indication: Scleritis

REACTIONS (2)
  - Condition aggravated [Fatal]
  - Abdominal pain [Unknown]
